FAERS Safety Report 17933435 (Version 1)
Quarter: 2020Q2

REPORT INFORMATION
  Report Type: Spontaneous
  Country: US (occurrence: US)
  Receive Date: 20200624
  Receipt Date: 20200624
  Transmission Date: 20200714
  Serious: No
  Sender: FDA-Public Use
  Company Number: US-009507513-2006USA007016

PATIENT
  Age: 7 Year

DRUGS (1)
  1. EMEND [Suspect]
     Active Substance: APREPITANT
     Dosage: 40 MG TWICE A WEEK FOR 60 DAYS
     Route: 048

REACTIONS (2)
  - Product prescribing issue [Unknown]
  - No adverse event [Unknown]
